FAERS Safety Report 25448393 (Version 1)
Quarter: 2025Q2

REPORT INFORMATION
  Report Type: Spontaneous
  Country: US (occurrence: US)
  Receive Date: 20250617
  Receipt Date: 20250617
  Transmission Date: 20250717
  Serious: No
  Sender: ABBVIE
  Company Number: US-ABBVIE-6320261

PATIENT
  Sex: Female

DRUGS (1)
  1. LO LOESTRIN FE [Suspect]
     Active Substance: ETHINYL ESTRADIOL\NORETHINDRONE ACETATE
     Indication: Product used for unknown indication
     Route: 048

REACTIONS (7)
  - Periorbital swelling [Unknown]
  - Menopause delayed [Unknown]
  - Heavy menstrual bleeding [Unknown]
  - Urticaria [Unknown]
  - Lip swelling [Unknown]
  - Anxiety [Unknown]
  - Panic attack [Unknown]
